FAERS Safety Report 5705803-9 (Version None)
Quarter: 2008Q2

REPORT INFORMATION
  Report Type: 
  Country: None (occurrence: None)
  Receive Date: 20080414
  Receipt Date: 20080414
  Transmission Date: 20081010
  Serious: Yes (Life-Threatening)
  Sender: FDA-Public Use
  Company Number: None

PATIENT
  Age: 37 Year
  Sex: Female
  Weight: 65.7716 kg

DRUGS (1)
  1. AMBIEN CR [Suspect]
     Indication: INSOMNIA
     Dosage: 1 PILL ONCE AT NIGHT PO
     Route: 048
     Dates: start: 20061001, end: 20070723

REACTIONS (4)
  - ABNORMAL SLEEP-RELATED EVENT [None]
  - AMNESIA [None]
  - ROAD TRAFFIC ACCIDENT [None]
  - SOMNAMBULISM [None]
